FAERS Safety Report 7019721-X (Version None)
Quarter: 2010Q3

REPORT INFORMATION
  Report Type: 
  Country: None (occurrence: None)
  Receive Date: 20100929
  Receipt Date: 20100921
  Transmission Date: 20110219
  Serious: Yes (Hospitalization)
  Sender: FDA-Public Use
  Company Number: US-BIOGENIDEC-2010BI019277

PATIENT
  Age: 35 Year
  Sex: Female

DRUGS (14)
  1. TYSABRI [Suspect]
     Indication: MULTIPLE SCLEROSIS
     Route: 042
     Dates: start: 20061205
  2. CYMBALTA [Concomitant]
     Indication: DEPRESSION
     Route: 048
  3. CLOZAPINE [Concomitant]
     Indication: DEPRESSION
  4. VERAPAMIL [Concomitant]
     Indication: MIGRAINE
  5. HYDROCHLOROTHIAZIDE [Concomitant]
     Indication: PRODUCT USED FOR UNKNOWN INDICATION
     Route: 048
  6. AMBIEN [Concomitant]
     Indication: PRODUCT USED FOR UNKNOWN INDICATION
     Route: 048
  7. RECLAST [Concomitant]
     Indication: PRODUCT USED FOR UNKNOWN INDICATION
  8. SANCTURA [Concomitant]
     Indication: HYPERTONIC BLADDER
  9. ZOFRAN [Concomitant]
  10. SEROQUEL [Concomitant]
     Indication: PRODUCT USED FOR UNKNOWN INDICATION
     Route: 048
  11. DICLOFENAC [Concomitant]
     Indication: PRODUCT USED FOR UNKNOWN INDICATION
     Route: 048
  12. ALMOTRIPTAN [Concomitant]
     Indication: MIGRAINE
  13. ENOXAPARIN SODIUM [Concomitant]
     Indication: THROMBOSIS PROPHYLAXIS
  14. TRAZODONE [Concomitant]
     Indication: PRODUCT USED FOR UNKNOWN INDICATION
     Route: 048

REACTIONS (8)
  - CYSTITIS [None]
  - GASTROINTESTINAL INFECTION [None]
  - ILEUS [None]
  - INFLUENZA [None]
  - MULTIPLE SCLEROSIS RELAPSE [None]
  - NASOPHARYNGITIS [None]
  - URINARY TRACT INFECTION [None]
  - VIRAL INFECTION [None]
